FAERS Safety Report 6891506-4 (Version None)
Quarter: 2010Q3

REPORT INFORMATION
  Report Type: 
  Country: None (occurrence: None)
  Receive Date: 20100731
  Receipt Date: 20071215
  Transmission Date: 20110219
  Serious: No
  Sender: FDA-Public Use
  Company Number: US-PFIZER INC-2007054985

PATIENT
  Sex: Female
  Weight: 78.47 kg

DRUGS (1)
  1. NORVASC [Suspect]
     Indication: HYPERTENSION
     Route: 048
     Dates: start: 20060303, end: 20070801

REACTIONS (21)
  - ASTHENIA [None]
  - BODY HEIGHT DECREASED [None]
  - BONE DISORDER [None]
  - DECREASED APPETITE [None]
  - DEPRESSION [None]
  - DRY SKIN [None]
  - EAR CONGESTION [None]
  - ERYTHEMA [None]
  - EYE DISORDER [None]
  - FATIGUE [None]
  - FEELING ABNORMAL [None]
  - HYPERSENSITIVITY [None]
  - HYPERSOMNIA [None]
  - HYPOACUSIS [None]
  - OEDEMA PERIPHERAL [None]
  - OTORRHOEA [None]
  - RASH [None]
  - SINUS CONGESTION [None]
  - TENSION [None]
  - WEIGHT DECREASED [None]
  - WEIGHT INCREASED [None]
